FAERS Safety Report 14425678 (Version 1)
Quarter: 2018Q1

REPORT INFORMATION
  Report Type: Spontaneous
  Country: US (occurrence: US)
  Receive Date: 20180122
  Receipt Date: 20180122
  Transmission Date: 20180509
  Serious: Yes (Hospitalization)
  Sender: FDA-Public Use
  Company Number: None

PATIENT
  Age: 79 Year
  Sex: Male
  Weight: 82 kg

DRUGS (1)
  1. IOHEXOL [Suspect]
     Active Substance: IOHEXOL
     Indication: SPINAL MYELOGRAM
     Dosage: ?          OTHER FREQUENCY:ONCE;?
     Route: 037
     Dates: start: 20170803, end: 20170803

REACTIONS (4)
  - Neck pain [None]
  - Headache [None]
  - Somnolence [None]
  - Meningitis chemical [None]

NARRATIVE: CASE EVENT DATE: 20170806
